FAERS Safety Report 16569934 (Version 1)
Quarter: 2019Q3

REPORT INFORMATION
  Report Type: Spontaneous
  Country: US (occurrence: US)
  Receive Date: 20190715
  Receipt Date: 20190715
  Transmission Date: 20191004
  Serious: No
  Sender: FDA-Public Use
  Company Number: US-AUROBINDO-AUR-APL-2019-028844

PATIENT

DRUGS (1)
  1. FONDAPARINUX SODIUM 7.5MG/0.6ML [Suspect]
     Active Substance: FONDAPARINUX SODIUM
     Indication: PRODUCT USED FOR UNKNOWN INDICATION
     Dosage: UNK
     Route: 065

REACTIONS (3)
  - Patient dissatisfaction with device [Unknown]
  - Injection site haemorrhage [Unknown]
  - Product substitution issue [Unknown]
